FAERS Safety Report 7596993-4 (Version None)
Quarter: 2011Q3

REPORT INFORMATION
  Report Type: 
  Country: None (occurrence: None)
  Receive Date: 20110708
  Receipt Date: 20110630
  Transmission Date: 20111222
  Serious: Yes (Hospitalization)
  Sender: FDA-Public Use
  Company Number: IN-SANOFI-AVENTIS-2011SA041438

PATIENT
  Age: 35 Year
  Sex: Male

DRUGS (8)
  1. ALL OTHER THERAPEUTIC PRODUCTS [Concomitant]
     Route: 048
     Dates: start: 20110620
  2. PYRAZINAMIDE [Suspect]
     Indication: PULMONARY TUBERCULOSIS
     Route: 065
     Dates: start: 20110623, end: 20110628
  3. ALL OTHER THERAPEUTIC PRODUCTS [Concomitant]
     Route: 048
     Dates: start: 20110620, end: 20110625
  4. FAROPENEM SODIUM [Concomitant]
     Route: 048
     Dates: start: 20110620, end: 20110623
  5. BLINDED THERAPY [Suspect]
     Route: 065
     Dates: start: 20110623, end: 20110628
  6. RIFAMPICIN [Suspect]
     Indication: PULMONARY TUBERCULOSIS
     Route: 065
     Dates: start: 20110623, end: 20110628
  7. BLINDED THERAPY [Suspect]
     Route: 065
     Dates: start: 20110623, end: 20110628
  8. BLINDED THERAPY [Suspect]
     Indication: PULMONARY TUBERCULOSIS
     Route: 065
     Dates: start: 20110623, end: 20110628

REACTIONS (4)
  - WEIGHT DECREASED [None]
  - ATRIAL TACHYCARDIA [None]
  - COUGH [None]
  - PYREXIA [None]
